FAERS Safety Report 19648137 (Version 1)
Quarter: 2021Q3

REPORT INFORMATION
  Report Type: Spontaneous
  Country: US (occurrence: US)
  Receive Date: 20210803
  Receipt Date: 20210803
  Transmission Date: 20211014
  Serious: Yes (Other)
  Sender: FDA-Public Use
  Company Number: US-OCTA-LIT03321US

PATIENT
  Sex: Male

DRUGS (3)
  1. HUMAN ALBUMIN [Suspect]
     Active Substance: ALBUMIN HUMAN
     Indication: HEPATIC CIRRHOSIS
     Route: 042
  2. MIDODRINE [Suspect]
     Active Substance: MIDODRINE
     Indication: HEPATIC CIRRHOSIS
     Route: 042
  3. OCTREOTIDE. [Suspect]
     Active Substance: OCTREOTIDE
     Indication: HEPATIC CIRRHOSIS
     Route: 042

REACTIONS (2)
  - Renal impairment [Unknown]
  - Condition aggravated [Unknown]
